FAERS Safety Report 4272904-4 (Version None)
Quarter: 2004Q1

REPORT INFORMATION
  Report Type: 
  Country: None (occurrence: None)
  Receive Date: 20040114
  Receipt Date: 20031231
  Transmission Date: 20041129
  Serious: Yes (Disabling)
  Sender: FDA-Public Use
  Company Number: 203091

PATIENT
  Age: 47 Year
  Sex: Male
  Weight: 114.3 kg

DRUGS (5)
  1. XOLAIR [Suspect]
     Indication: ASTHMA
     Dosage: 300 MG,Q2W, SUBCUTANEOUS
     Route: 058
     Dates: start: 20030806, end: 20030922
  2. ADVAIR DISKUS [Concomitant]
  3. RHINOCORT [Concomitant]
  4. ALBUTEROL (ALBUTEROL, ALBUTEROL SULFATE) [Concomitant]
  5. PREDNISONE [Concomitant]

REACTIONS (2)
  - OEDEMA PERIPHERAL [None]
  - PROTEIN URINE [None]
